FAERS Safety Report 9186242 (Version 3)
Quarter: 2013Q2

REPORT INFORMATION
  Report Type: Report from Study
  Country: NL (occurrence: NL)
  Receive Date: 20130325
  Receipt Date: 20130405
  Transmission Date: 20140414
  Serious: Yes (Hospitalization)
  Sender: FDA-Public Use
  Company Number: NL-GLAXOSMITHKLINE-B0860657B

PATIENT
  Age: 65 Year
  Sex: Female
  Weight: 53 kg

DRUGS (3)
  1. PAZOPANIB [Suspect]
     Indication: NEOPLASM
     Dosage: 400MG PER DAY
     Route: 048
     Dates: start: 20130111
  2. PACLITAXEL [Suspect]
     Indication: NEOPLASM
     Dosage: 50MG WEEKLY
     Route: 042
     Dates: start: 20130103
  3. CARBOPLATIN [Suspect]
     Indication: NEOPLASM
     Dosage: 210MG WEEKLY
     Route: 042
     Dates: start: 20130103

REACTIONS (2)
  - Abdominal pain [Recovered/Resolved]
  - Constipation [Recovered/Resolved]
